FAERS Safety Report 16143590 (Version 1)
Quarter: 2019Q2

REPORT INFORMATION
  Report Type: Spontaneous
  Country: IT (occurrence: IT)
  Receive Date: 20190401
  Receipt Date: 20190401
  Transmission Date: 20190711
  Serious: Yes (Hospitalization)
  Sender: FDA-Public Use
  Company Number: IT-TEVA-2019-IT-1031060

PATIENT
  Age: 77 Year
  Sex: Male

DRUGS (7)
  1. NEBIVOLOL. [Suspect]
     Active Substance: NEBIVOLOL
     Indication: DRUG ABUSE
     Dates: start: 20180709, end: 20180709
  2. RAMIPRIL. [Suspect]
     Active Substance: RAMIPRIL
     Indication: DRUG ABUSE
     Dates: start: 20180709, end: 20180709
  3. LORAZEPAM. [Suspect]
     Active Substance: LORAZEPAM
     Indication: DRUG ABUSE
     Dates: start: 20180709, end: 20180709
  4. ACETYLSALICYLIC ACID [Concomitant]
     Active Substance: ASPIRIN
  5. BRILIQUE [Concomitant]
     Active Substance: TICAGRELOR
  6. LANSOX [Concomitant]
     Active Substance: LANSOPRAZOLE
  7. TORVAST [Concomitant]
     Active Substance: ATORVASTATIN

REACTIONS (2)
  - Drug abuse [Unknown]
  - Agitation [Unknown]

NARRATIVE: CASE EVENT DATE: 20180709
